FAERS Safety Report 23212133 (Version 1)
Quarter: 2023Q4

REPORT INFORMATION
  Report Type: Spontaneous
  Country: US (occurrence: None)
  Receive Date: 20231121
  Receipt Date: 20231121
  Transmission Date: 20240110
  Serious: No
  Sender: FDA-Public Use
  Company Number: None

PATIENT
  Age: 0 Year
  Sex: Female

DRUGS (1)
  1. HEMANGEOL [Suspect]
     Active Substance: PROPRANOLOL HYDROCHLORIDE
     Indication: Haemangioma congenital
     Dosage: FREQUENCY : TWICE A DAY;?
     Route: 048
     Dates: start: 20231014

REACTIONS (1)
  - Alopecia [None]

NARRATIVE: CASE EVENT DATE: 20231101
